FAERS Safety Report 8820710 (Version 2)
Quarter: 2012Q4

REPORT INFORMATION
  Report Type: 
  Country: NL (occurrence: NL)
  Receive Date: 20121002
  Receipt Date: 20121114
  Transmission Date: 20130627
  Serious: Yes (Hospitalization)
  Sender: FDA-Public Use
  Company Number: NL-PFIZER INC-2012238820

PATIENT
  Age: 52 Year
  Sex: Female
  Weight: 65.8 kg

DRUGS (9)
  1. GENOTROPIN [Suspect]
     Indication: HYPOPITUITARISM
     Dosage: 0.3 mg, 1x/day, 7 injections/week
     Route: 058
     Dates: start: 20040713
  2. DICLOFENAC [Concomitant]
     Indication: ANALGESIC THERAPY
     Dosage: UNK
     Dates: start: 19871031
  3. FOLIC ACID [Concomitant]
     Indication: FOLATE DEFICIENCY
     Dosage: UNK
     Dates: start: 19940412
  4. METHOTREXAT [Concomitant]
     Indication: RHEUMATOID ARTHRITIS
     Dosage: 2.5 mg 12x week
     Dates: start: 19940412
  5. BISOBLOC [Concomitant]
     Indication: HYPERTENSION
     Dosage: 10 mg, 2x/day
     Dates: start: 20021217
  6. HYDROCHLOROTHIAZIDE [Concomitant]
     Indication: HYPERTENSION
     Dosage: UNK
     Dates: start: 20040713
  7. LIPITOR [Concomitant]
     Dosage: 20 mg, 1x/day
     Dates: start: 20060131
  8. HYDROCORTISONE [Concomitant]
     Indication: ACTH DECREASED
     Dosage: 20 mg, 1x/day
     Dates: start: 2008
  9. CALCIUM WITH VITAMIN D [Concomitant]

REACTIONS (1)
  - Muscle rupture [Recovered/Resolved]
